FAERS Safety Report 11476991 (Version 1)
Quarter: 2015Q3

REPORT INFORMATION
  Report Type: Spontaneous
  Country: CA (occurrence: CA)
  Receive Date: 20150909
  Receipt Date: 20150909
  Transmission Date: 20151125
  Serious: Yes (Other)
  Sender: FDA-Public Use
  Company Number: CA-TEVA-591859ACC

PATIENT
  Age: 9 Year
  Sex: Female
  Weight: 34 kg

DRUGS (55)
  1. VINCRISTINE SULFATE INJECTION USP [Suspect]
     Active Substance: VINCRISTINE SULFATE
     Indication: ACUTE LYMPHOCYTIC LEUKAEMIA
     Route: 042
  2. VINCRISTINE SULFATE INJECTION USP [Suspect]
     Active Substance: VINCRISTINE SULFATE
     Route: 042
  3. VINCRISTINE SULFATE INJECTION USP [Suspect]
     Active Substance: VINCRISTINE SULFATE
     Route: 042
  4. VINCRISTINE SULFATE INJECTION USP [Suspect]
     Active Substance: VINCRISTINE SULFATE
     Route: 042
  5. L-ASPARAGINASE [Concomitant]
     Active Substance: ASPARAGINASE
     Route: 030
  6. LEUCOVORIN. [Concomitant]
     Active Substance: LEUCOVORIN
  7. ZINECARD [Concomitant]
     Active Substance: DEXRAZOXANE HYDROCHLORIDE
     Route: 042
  8. VINCRISTINE SULFATE INJECTION USP [Suspect]
     Active Substance: VINCRISTINE SULFATE
     Route: 042
  9. VINCRISTINE SULFATE INJECTION USP [Suspect]
     Active Substance: VINCRISTINE SULFATE
     Route: 042
  10. CYTARABINE INJECTION [Concomitant]
     Active Substance: CYTARABINE
  11. DIMENHYDRINATE. [Concomitant]
     Active Substance: DIMENHYDRINATE
  12. DOXORUBICIN HYDROCHLORIDE INJECTION [Concomitant]
     Active Substance: DOXORUBICIN HYDROCHLORIDE
  13. FLUTICASONE [Concomitant]
     Active Substance: FLUTICASONE\FLUTICASONE PROPIONATE
  14. HYDROXYZINE [Concomitant]
     Active Substance: HYDROXYZINE\HYDROXYZINE HYDROCHLORIDE
  15. LANSOPRAZOLE. [Concomitant]
     Active Substance: LANSOPRAZOLE
  16. NYSTATIN. [Concomitant]
     Active Substance: NYSTATIN
  17. VINCRISTINE SULFATE INJECTION USP [Suspect]
     Active Substance: VINCRISTINE SULFATE
     Route: 042
  18. AMLODIPINE [Concomitant]
     Active Substance: AMLODIPINE BESYLATE
  19. FASTURTEC [Concomitant]
     Active Substance: RASBURICASE
     Route: 042
  20. HYDROCORTISONE. [Concomitant]
     Active Substance: HYDROCORTISONE
  21. PREDNISONE. [Concomitant]
     Active Substance: PREDNISONE
  22. CALCIUM AND VITAMIN D3 [Concomitant]
     Active Substance: CALCIUM\CHOLECALCIFEROL
  23. CEFTAZIDIME FOR INJECTION, USP [Concomitant]
     Route: 030
  24. MERCAPTOPURINE. [Concomitant]
     Active Substance: MERCAPTOPURINE
  25. SENNOSIDES. [Concomitant]
     Active Substance: SENNOSIDES
  26. SULFAMETHOXAZOLE AND TRIMETHOPRIM [Concomitant]
     Active Substance: SULFAMETHOXAZOLE\TRIMETHOPRIM
  27. TIMENTIN [Concomitant]
     Active Substance: CLAVULANATE POTASSIUM\TICARCILLIN DISODIUM
     Route: 042
  28. VINCRISTINE SULFATE INJECTION USP [Suspect]
     Active Substance: VINCRISTINE SULFATE
     Route: 042
  29. VINCRISTINE SULFATE INJECTION USP [Suspect]
     Active Substance: VINCRISTINE SULFATE
     Route: 042
  30. ALLOPURINOL. [Concomitant]
     Active Substance: ALLOPURINOL
  31. CODEINE [Concomitant]
     Active Substance: CODEINE
  32. DIPHENHYDRAMINE. [Concomitant]
     Active Substance: DIPHENHYDRAMINE
  33. DOCUSATE [Concomitant]
     Active Substance: DOCUSATE
  34. ENOXAPARIN [Concomitant]
     Active Substance: ENOXAPARIN
  35. FLUCONAZOLE. [Concomitant]
     Active Substance: FLUCONAZOLE
  36. METHOTREXATE [Concomitant]
     Active Substance: METHOTREXATE
  37. ONDANSETRON [Concomitant]
     Active Substance: ONDANSETRON
  38. RANITIDINE [Concomitant]
     Active Substance: RANITIDINE\RANITIDINE HYDROCHLORIDE
  39. VINCRISTINE SULFATE INJECTION USP [Suspect]
     Active Substance: VINCRISTINE SULFATE
     Route: 042
  40. VINCRISTINE SULFATE INJECTION USP [Suspect]
     Active Substance: VINCRISTINE SULFATE
     Dosage: .0714 MILLIGRAM DAILY;
     Route: 042
  41. ASPARAGINASE (E.COLI) [Concomitant]
  42. VANCOMYCIN [Concomitant]
     Active Substance: VANCOMYCIN
  43. ACETAMINOPHEN. [Concomitant]
     Active Substance: ACETAMINOPHEN
  44. GRANISETRON [Concomitant]
     Active Substance: GRANISETRON
  45. METHYLPREDNISOLONE NOS [Concomitant]
     Active Substance: METHYLPREDNISOLONE OR METHYLPREDNISOLONE ACETATE
  46. METRONIDAZOLE. [Concomitant]
     Active Substance: METRONIDAZOLE
  47. MORPHINE [Concomitant]
     Active Substance: MORPHINE
  48. PYRIDOXINE [Concomitant]
     Active Substance: PYRIDOXINE
  49. VINCRISTINE SULFATE INJECTION USP [Suspect]
     Active Substance: VINCRISTINE SULFATE
     Route: 042
  50. AMOXICILLIN. [Concomitant]
     Active Substance: AMOXICILLIN
  51. DEXAMETHASONE. [Concomitant]
     Active Substance: DEXAMETHASONE
  52. LORAZEPAM. [Concomitant]
     Active Substance: LORAZEPAM
  53. METOCLOPRAMIDE. [Concomitant]
     Active Substance: METOCLOPRAMIDE
  54. PENTAMIDINE ISETHIONATE INJ 300MG/VIAL BP [Concomitant]
     Route: 030
  55. TOBRAMYCIN INJECTION USP [Concomitant]

REACTIONS (6)
  - Arthralgia [Not Recovered/Not Resolved]
  - Muscular weakness [Not Recovered/Not Resolved]
  - Gait disturbance [Not Recovered/Not Resolved]
  - Tendon discomfort [Not Recovered/Not Resolved]
  - Fine motor delay [Not Recovered/Not Resolved]
  - Dysgraphia [Not Recovered/Not Resolved]
